FAERS Safety Report 4886918-4 (Version None)
Quarter: 2006Q1

REPORT INFORMATION
  Report Type: 
  Country: None (occurrence: None)
  Receive Date: 20060119
  Receipt Date: 20060110
  Transmission Date: 20060701
  Serious: Yes (Other)
  Sender: FDA-Public Use
  Company Number: 2006-DE-00112GD

PATIENT
  Age: 2 Day
  Sex: Male

DRUGS (4)
  1. ACETYLSALICYLIC ACID SRT [Suspect]
     Indication: FALLOT'S TETRALOGY
     Dosage: 5 MG/KG
  2. FUROSEMIDE [Suspect]
     Indication: FALLOT'S TETRALOGY
     Dosage: 1 MG/KG
  3. DIAZOXIDE [Suspect]
     Indication: HYPERINSULINISM
     Dosage: 3 MG/KG
  4. SPIRONOLACTONE [Suspect]
     Indication: FALLOT'S TETRALOGY
     Dosage: 0.4 MG/KG

REACTIONS (4)
  - DRUG EFFECT INCREASED [None]
  - DRUG INTERACTION [None]
  - HYPERGLYCAEMIA [None]
  - HYPOGLYCAEMIA [None]
